FAERS Safety Report 8335099-3 (Version None)
Quarter: 2012Q2

REPORT INFORMATION
  Report Type: 
  Country: None (occurrence: None)
  Receive Date: 20120503
  Receipt Date: 20100503
  Transmission Date: 20120825
  Serious: No
  Sender: FDA-Public Use
  Company Number: US-TEVA-2010002553

PATIENT
  Sex: Female
  Weight: 90.8 kg

DRUGS (7)
  1. FOCALIN XR [Concomitant]
     Indication: DISTURBANCE IN ATTENTION
     Dosage: 15 MILLIGRAM;
  2. ZOLOFT [Concomitant]
     Indication: DEPRESSION
     Dosage: 200MG AM, 100MG PM
  3. FOCALIN [Concomitant]
     Indication: DISTURBANCE IN ATTENTION
     Dosage: 20 MILLIGRAM;
  4. PRAVACHOL [Concomitant]
     Indication: BLOOD CHOLESTEROL INCREASED
     Dosage: 80 MILLIGRAM;
  5. NUVIGIL [Suspect]
     Indication: SOMNOLENCE
     Dosage: 250 MILLIGRAM;
     Route: 048
     Dates: start: 20100401
  6. DEPAKOTE [Concomitant]
     Indication: MIGRAINE
     Dates: start: 20100502
  7. MULTI-VITAMINS [Concomitant]

REACTIONS (1)
  - DRUG INEFFECTIVE FOR UNAPPROVED INDICATION [None]
